FAERS Safety Report 11323520 (Version 1)
Quarter: 2015Q3

REPORT INFORMATION
  Report Type: Report from Study
  Country: BR (occurrence: BR)
  Receive Date: 20150730
  Receipt Date: 20150730
  Transmission Date: 20151125
  Serious: Yes (Death, Hospitalization, Disabling, Other)
  Sender: FDA-Public Use
  Company Number: BR-ROCHE-727658

PATIENT
  Age: 69 Year
  Sex: Female
  Weight: 56 kg

DRUGS (11)
  1. SPIRONOLACTONE. [Concomitant]
     Active Substance: SPIRONOLACTONE
  2. DIPYRONE [Concomitant]
     Active Substance: DIPYRONE
  3. AMITRIPTYLINE [Concomitant]
     Active Substance: AMITRIPTYLINE
     Indication: DEPRESSION
     Route: 065
  4. PREDNISONE. [Concomitant]
     Active Substance: PREDNISONE
  5. NPH INSULIN [Concomitant]
     Active Substance: INSULIN BEEF
     Dosage: DRUG:INSULINE NPH 45 UNITS
     Route: 065
  6. PURAN [Concomitant]
     Active Substance: LEVOTHYROXINE SODIUM
     Route: 065
  7. PROPRANOLOL [Concomitant]
     Active Substance: PROPRANOLOL\PROPRANOLOL HYDROCHLORIDE
  8. MABTHERA [Suspect]
     Active Substance: RITUXIMAB
     Indication: RHEUMATOID ARTHRITIS
     Dosage: FORM: INFUSION, DOSE 100 MG/10 ML, 1000 MG IN EACH INFUSION
     Route: 042
     Dates: start: 20100415, end: 20100503
  9. MABTHERA [Suspect]
     Active Substance: RITUXIMAB
     Route: 042
  10. METFORMIN [Concomitant]
     Active Substance: METFORMIN HYDROCHLORIDE
     Route: 065
  11. CARBOLITIUM [Concomitant]
     Active Substance: LITHIUM CARBONATE
     Route: 065

REACTIONS (23)
  - Arthralgia [Unknown]
  - Rheumatoid arthritis [Not Recovered/Not Resolved]
  - Rheumatoid arthritis [Unknown]
  - Blood glucose increased [Unknown]
  - Arthritis [Not Recovered/Not Resolved]
  - Deformity [Not Recovered/Not Resolved]
  - Mobility decreased [Not Recovered/Not Resolved]
  - Death [Fatal]
  - Weight decreased [Unknown]
  - Bedridden [Unknown]
  - Hepatic cirrhosis [Unknown]
  - Sleep disorder [Unknown]
  - Pulmonary oedema [Unknown]
  - Motor dysfunction [Not Recovered/Not Resolved]
  - Ascites [Unknown]
  - Coma [Not Recovered/Not Resolved]
  - Feeding disorder [Unknown]
  - Hand deformity [Unknown]
  - Treatment noncompliance [Not Recovered/Not Resolved]
  - Ill-defined disorder [Unknown]
  - Hypertension [Unknown]
  - Grip strength decreased [Unknown]
  - Upper extremity mass [Unknown]

NARRATIVE: CASE EVENT DATE: 2012
